FAERS Safety Report 17116060 (Version 1)
Quarter: 2019Q4

REPORT INFORMATION
  Report Type: Spontaneous
  Country: US (occurrence: US)
  Receive Date: 20191202
  Receipt Date: 20191202
  Transmission Date: 20200122
  Serious: Yes (Other)
  Sender: FDA-Public Use
  Company Number: None

PATIENT
  Age: 20 Year
  Sex: Female
  Weight: 51.3 kg

DRUGS (11)
  1. VITAMIN D [Concomitant]
     Active Substance: VITAMIN D NOS
  2. ENEMA (SODIUM PHOSPHATE, DIBASIC\SODIUM PHOSPHATE, MONOBASIC) [Concomitant]
     Active Substance: SODIUM PHOSPHATE, DIBASIC\SODIUM PHOSPHATE, MONOBASIC
  3. SELENOUS ACID [Suspect]
     Active Substance: SELENIOUS ACID
     Indication: DRUG DEPENDENCE
     Dosage: ?          OTHER ROUTE:TPN?
     Dates: start: 20191016, end: 20191119
  4. GJ TUBE [Concomitant]
  5. MAGNESIUM OXIDE. [Concomitant]
     Active Substance: MAGNESIUM OXIDE
  6. COENZYME Q10 [Concomitant]
     Active Substance: UBIDECARENONE
  7. MIDODRINE [Concomitant]
     Active Substance: MIDODRINE
  8. LACTULOSE. [Concomitant]
     Active Substance: LACTULOSE
  9. TPN [Suspect]
     Active Substance: AMINO ACIDS\DEXTROSE\ELECTROLYTES NOS\SOYBEAN OIL
     Indication: DRUG DEPENDENCE
     Dates: start: 20191016, end: 20191119
  10. GABAPENTIN. [Concomitant]
     Active Substance: GABAPENTIN
  11. MONTELUKAST [Concomitant]
     Active Substance: MONTELUKAST SODIUM

REACTIONS (1)
  - Alopecia [None]

NARRATIVE: CASE EVENT DATE: 20191101
